FAERS Safety Report 4711337-0 (Version None)
Quarter: 2005Q3

REPORT INFORMATION
  Report Type: 
  Country: None (occurrence: None)
  Receive Date: 20050708
  Receipt Date: 20050629
  Transmission Date: 20060218
  Serious: Yes (Hospitalization, Other)
  Sender: FDA-Public Use
  Company Number: 2005085656

PATIENT
  Age: 75 Year
  Sex: Female
  Weight: 95.2554 kg

DRUGS (5)
  1. NORVASC [Suspect]
     Indication: HYPERTENSION
     Dosage: 5 MG (5, 1 IN 1 D), ORAL
     Route: 048
  2. CHONDROITIN/GLUCOSAMINE [Concomitant]
  3. CENTRUM SILVER (ASCORBIC ACID, CALCIUM, MINERALS, NOS, RETINOL, TOCOPH [Concomitant]
  4. CALTRATE (CALCIUM CARBONATE) [Concomitant]
  5. NAPROSYN [Concomitant]

REACTIONS (6)
  - BLOOD PRESSURE INADEQUATELY CONTROLLED [None]
  - RASH [None]
  - RECTAL HAEMORRHAGE [None]
  - ULCER [None]
  - VOMITING [None]
  - WEIGHT FLUCTUATION [None]
